FAERS Safety Report 8476603-4 (Version None)
Quarter: 2012Q2

REPORT INFORMATION
  Report Type: 
  Country: None (occurrence: None)
  Receive Date: 20120628
  Receipt Date: 20120614
  Transmission Date: 20120825
  Serious: No
  Sender: FDA-Public Use
  Company Number: US-ASTRAZENECA-2012SE39819

PATIENT

DRUGS (3)
  1. ZOLOFT [Suspect]
     Route: 065
  2. SYMBICORT [Suspect]
     Dosage: UNKNOWN
     Route: 055
  3. ZOLOFT [Suspect]
     Route: 065

REACTIONS (1)
  - SLEEP TERROR [None]
